FAERS Safety Report 25439960 (Version 2)
Quarter: 2025Q2

REPORT INFORMATION
  Report Type: Spontaneous
  Country: GB (occurrence: GB)
  Receive Date: 20250616
  Receipt Date: 20250619
  Transmission Date: 20250717
  Serious: Yes (Disabling, Other)
  Sender: ORGANON
  Company Number: None

PATIENT
  Age: 40 Year
  Sex: Female
  Weight: 140 kg

DRUGS (22)
  1. NASONEX [Suspect]
     Active Substance: MOMETASONE FUROATE
     Dosage: MOMETASONE 50MICROGRAMS/DOSE NASAL SPRAYTWO SPRAYS DAILY IN EACH NOSTRIL FOR 4 WEEKS
     Dates: start: 20250509, end: 20250530
  2. FERROUS FUMARATE [Concomitant]
     Active Substance: FERROUS FUMARATE
     Indication: Ill-defined disorder
     Dosage: TAKE ONE ONCE A DAY
     Dates: start: 20250313, end: 20250605
  3. FOLIC ACID [Concomitant]
     Active Substance: FOLIC ACID
     Indication: Ill-defined disorder
     Dosage: TAKE ONE DAILY
     Dates: start: 20250313, end: 20250605
  4. CLOTRIMAZOLE [Concomitant]
     Active Substance: CLOTRIMAZOLE
     Indication: Ill-defined disorder
     Dates: start: 20250509, end: 20250516
  5. HYDROCORTISONE [Concomitant]
     Active Substance: HYDROCORTISONE
     Indication: Ill-defined disorder
     Dates: start: 20250509, end: 20250516
  6. DOXYCYCLINE [Concomitant]
     Active Substance: DOXYCYCLINE
     Indication: Ill-defined disorder
     Dates: start: 20250610
  7. ALLEVYN GENTLE BORDER [Concomitant]
     Indication: Ill-defined disorder
     Dates: start: 20230301
  8. HIBISCRUB [CHLORHEXIDINE] [Concomitant]
     Indication: Ill-defined disorder
     Dates: start: 20230301
  9. CITALOPRAM [Concomitant]
     Active Substance: CITALOPRAM
     Indication: Ill-defined disorder
     Dosage: TAKE TWO DAILY
     Dates: start: 20230504
  10. OMEPRAZOLE [Concomitant]
     Active Substance: OMEPRAZOLE
     Indication: Ill-defined disorder
     Dosage: TAKE ONE DAILY
     Dates: start: 20230504
  11. PROCHLORPERAZINE [Concomitant]
     Active Substance: PROCHLORPERAZINE
     Indication: Ill-defined disorder
     Dates: start: 20231218, end: 20250311
  12. SUMATRIPTAN [Concomitant]
     Active Substance: SUMATRIPTAN
     Indication: Ill-defined disorder
     Dates: start: 20231218, end: 20250311
  13. AMITRIPTYLINE HYDROCHLORIDE [Concomitant]
     Active Substance: AMITRIPTYLINE HYDROCHLORIDE
     Indication: Ill-defined disorder
     Dosage: 10MG TO BE TAKEN EACH NIGHT FOR ONE WEEK THEN I.
     Dates: start: 20231218, end: 20250311
  14. DEPO-PROVERA [Concomitant]
     Active Substance: MEDROXYPROGESTERONE ACETATE
     Indication: Ill-defined disorder
     Dates: start: 20240124
  15. BECLOMETHASONE DIPROPIONATE [Concomitant]
     Active Substance: BECLOMETHASONE DIPROPIONATE
     Indication: Ill-defined disorder
     Dosage: INHALE 2 DOSE TWICE DAILY
     Dates: start: 20240410
  16. ALBUTEROL [Concomitant]
     Active Substance: ALBUTEROL
     Indication: Ill-defined disorder
     Dosage: INHALE 2 DOSES AS NEEDED
     Dates: start: 20240410
  17. PROPRANOLOL [Concomitant]
     Active Substance: PROPRANOLOL HYDROCHLORIDE
     Indication: Ill-defined disorder
     Dates: start: 20240517
  18. DUAC [Concomitant]
     Active Substance: BENZOYL PEROXIDE\CLINDAMYCIN PHOSPHATE
     Indication: Ill-defined disorder
     Dosage: APPLY ONCE DAILY IN THE EVENING AS DIRECTED BY
     Dates: start: 20240707
  19. FERROUS SULFATE [Concomitant]
     Active Substance: FERROUS SULFATE
     Indication: Ill-defined disorder
     Dosage: TAKE ONE DAILY
     Dates: start: 20240707
  20. AXPINET [Concomitant]
     Indication: Ill-defined disorder
     Dosage: TAKE TWO WITH BREAKFAST AND TWO WITH EVENING MEALS
     Dates: start: 20240924, end: 20250311
  21. EMPAGLIFLOZIN [Concomitant]
     Active Substance: EMPAGLIFLOZIN
     Indication: Ill-defined disorder
     Dosage: TAKE ONE DAILY
     Dates: start: 20241030
  22. SUKKARTO SR [Concomitant]
     Indication: Ill-defined disorder
     Dosage: ONE TWICE A DAY WITH FOOD
     Dates: start: 20250311

REACTIONS (2)
  - Wheezing [Recovered/Resolved]
  - Asthma [Unknown]
